FAERS Safety Report 26052478 (Version 1)
Quarter: 2025Q4

REPORT INFORMATION
  Report Type: Report from Study
  Country: CA (occurrence: None)
  Receive Date: 20251117
  Receipt Date: 20251117
  Transmission Date: 20260118
  Serious: Yes (Hospitalization)
  Sender: CHIESI
  Company Number: CA-CHIESI-2023CHF01131

PATIENT
  Age: 51 Year
  Sex: Female
  Weight: 58.2 kg

DRUGS (3)
  1. DEFERIPRONE [Suspect]
     Active Substance: DEFERIPRONE
     Indication: Sickle cell disease
     Dosage: 4000 MILLIGRAM, QD
     Dates: start: 20190826
  2. DEFERIPRONE [Suspect]
     Active Substance: DEFERIPRONE
     Dosage: 3500 MILLIGRAM
  3. DEFERIPRONE [Suspect]
     Active Substance: DEFERIPRONE
     Dosage: UNK, TID
     Dates: start: 202302

REACTIONS (5)
  - Seizure [Recovering/Resolving]
  - Urinary tract infection [Recovered/Resolved]
  - Product administration interrupted [Recovered/Resolved]
  - Off label use [Not Recovered/Not Resolved]
  - Treatment noncompliance [Not Recovered/Not Resolved]

NARRATIVE: CASE EVENT DATE: 20190826
